FAERS Safety Report 9243169 (Version 1)
Quarter: 2013Q2

REPORT INFORMATION
  Report Type: Spontaneous
  Country: US (occurrence: US)
  Receive Date: 20130419
  Receipt Date: 20130419
  Transmission Date: 20140414
  Serious: No
  Sender: FDA-Public Use
  Company Number: US-VERTEX PHARMACEUTICALS INC.-2013-005056

PATIENT
  Age: 55 Year
  Sex: Female
  Weight: 72 kg

DRUGS (6)
  1. INCIVEK [Suspect]
     Indication: HEPATITIS C
     Dosage: 1125 MG, TID
     Route: 048
     Dates: start: 20130319
  2. PEGASYS [Suspect]
     Indication: HEPATITIS C
     Dosage: 180 ?G, QW
     Route: 058
     Dates: start: 20130319
  3. RIBAVIRIN [Suspect]
     Indication: HEPATITIS C
     Dosage: 600 MG, BID
     Route: 048
     Dates: start: 20130319
  4. ATRIPLA [Concomitant]
     Indication: HIV INFECTION
     Dosage: 1 DF, QD
     Route: 048
  5. DELESTROGEH INJECTION [Concomitant]
     Indication: HORMONE REPLACEMENT THERAPY
     Dosage: MONTHLY
     Route: 030
  6. PREMARIN [Concomitant]
     Indication: HORMONE REPLACEMENT THERAPY
     Dosage: 2.5 MG, QD
     Route: 048

REACTIONS (6)
  - Weight decreased [Not Recovered/Not Resolved]
  - Dry skin [Recovered/Resolved]
  - Off label use [Unknown]
  - Rash [Recovered/Resolved]
  - Urticaria [Recovered/Resolved]
  - Pruritus [Recovered/Resolved]
